FAERS Safety Report 12544336 (Version 1)
Quarter: 2016Q3

REPORT INFORMATION
  Report Type: Report from Study
  Country: CO (occurrence: CO)
  Receive Date: 20160711
  Receipt Date: 20160711
  Transmission Date: 20161109
  Serious: Yes (Other)
  Sender: FDA-Public Use
  Company Number: PHHY2015CO091793

PATIENT
  Sex: Female
  Weight: 80 kg

DRUGS (4)
  1. GALVUS [Suspect]
     Active Substance: VILDAGLIPTIN
     Indication: DIABETES MELLITUS
     Dosage: 50 MG, UNK
     Route: 065
  2. SANDOSTATIN LAR DEPOT [Suspect]
     Active Substance: OCTREOTIDE ACETATE
     Dosage: 20 MG, QMO
     Route: 065
     Dates: start: 20150717
  3. SANDOSTATIN LAR DEPOT [Suspect]
     Active Substance: OCTREOTIDE ACETATE
     Indication: NEUROENDOCRINE TUMOUR
     Dosage: 20 MG, QMO
     Route: 065
  4. INSULIN [Concomitant]
     Active Substance: INSULIN NOS
     Indication: PRODUCT USED FOR UNKNOWN INDICATION
     Dosage: 30 MG, QD (IN THE MORNING)
     Route: 065

REACTIONS (7)
  - Laboratory test abnormal [Unknown]
  - Hypokinesia [Recovering/Resolving]
  - Hyperhidrosis [Unknown]
  - Headache [Unknown]
  - Malaise [Unknown]
  - Diabetic neuropathy [Recovering/Resolving]
  - Gastrointestinal disorder [Unknown]
